FAERS Safety Report 6825648-6 (Version None)
Quarter: 2010Q3

REPORT INFORMATION
  Report Type: 
  Country: None (occurrence: None)
  Receive Date: 20100709
  Receipt Date: 20100628
  Transmission Date: 20110219
  Serious: Yes (Hospitalization)
  Sender: FDA-Public Use
  Company Number: US-BIOGENIDEC-2010BI021997

PATIENT
  Age: 53 Year
  Sex: Female
  Weight: 52 kg

DRUGS (6)
  1. TYSABRI [Suspect]
     Indication: MULTIPLE SCLEROSIS
     Route: 042
     Dates: start: 20090805
  2. CELEXA [Concomitant]
     Indication: DEPRESSION
  3. LEVOTHYROXINE SODIUM [Concomitant]
     Indication: HYPERTHYROIDISM
  4. PRAVASTATIN [Concomitant]
     Indication: BLOOD CHOLESTEROL INCREASED
  5. OXYBUTYNIN CHLORIDE [Concomitant]
     Indication: BLADDER DISORDER
  6. MECLIZINE [Concomitant]
     Indication: DIZZINESS

REACTIONS (5)
  - BLOOD POTASSIUM DECREASED [None]
  - ECHOCARDIOGRAM ABNORMAL [None]
  - GAIT DISTURBANCE [None]
  - HEART RATE DECREASED [None]
  - PAIN IN EXTREMITY [None]
